FAERS Safety Report 9160414 (Version 1)
Quarter: 2013Q1

REPORT INFORMATION
  Report Type: Spontaneous
  Country: GB (occurrence: None)
  Receive Date: 20130131
  Receipt Date: 20130131
  Transmission Date: 20140127
  Serious: Yes (Disabling, Other)
  Sender: FDA-Public Use
  Company Number: CL-468-2013

PATIENT
  Age: 35 Year
  Sex: Female

DRUGS (2)
  1. METRONIDAZOLE UNK [Suspect]
     Indication: TOOTH INFECTION
     Dosage: 400MG 3/DAY ORAL
     Route: 048
     Dates: start: 20121222, end: 20121229
  2. LAMOTRIGINE [Suspect]

REACTIONS (2)
  - Drug interaction [None]
  - Epilepsy [None]
